FAERS Safety Report 4579534-5 (Version None)
Quarter: 2005Q1

REPORT INFORMATION
  Report Type: 
  Country: None (occurrence: None)
  Receive Date: 20050210
  Receipt Date: 20050131
  Transmission Date: 20050727
  Serious: Yes (Other)
  Sender: FDA-Public Use
  Company Number: 2005022341

PATIENT
  Sex: Female
  Weight: 71.2147 kg

DRUGS (1)
  1. BEN-GAY ULTRA (MENTHOL, CAMPHOR, METHYL SALICYLATE) [Suspect]
     Indication: ARTHRITIS
     Dosage: UNSPECIFIED AMT EVERY

REACTIONS (1)
  - CATARACT [None]
